FAERS Safety Report 8268854-9 (Version None)
Quarter: 2012Q2

REPORT INFORMATION
  Report Type: 
  Country: None (occurrence: None)
  Receive Date: 20120409
  Receipt Date: 20120409
  Transmission Date: 20120825
  Serious: Yes (Other)
  Sender: FDA-Public Use
  Company Number: None

PATIENT
  Age: 19 Year
  Sex: Female
  Weight: 65.77 kg

DRUGS (2)
  1. CETIRIZINE HYDROCHLORIDE [Concomitant]
  2. CETIRIZINE HYDROCHLORIDE [Suspect]
     Indication: HYPERSENSITIVITY
     Dosage: 1 TABLET/ 10 MG
     Route: 048
     Dates: start: 20120408, end: 20120408

REACTIONS (4)
  - HEADACHE [None]
  - NAUSEA [None]
  - VOMITING [None]
  - DIZZINESS [None]
